FAERS Safety Report 4587247-9 (Version None)
Quarter: 2005Q1

REPORT INFORMATION
  Report Type: 
  Country: None (occurrence: None)
  Receive Date: 20050218
  Receipt Date: 20050210
  Transmission Date: 20050727
  Serious: Yes (Disabling)
  Sender: FDA-Public Use
  Company Number: GB-GLAXOSMITHKLINE-B0371030A

PATIENT
  Age: 31 Year
  Sex: Male
  Weight: 7 kg

DRUGS (3)
  1. ZYBAN [Suspect]
     Dosage: 150MG VARIABLE DOSE
     Route: 048
     Dates: start: 20041214, end: 20050114
  2. HUMALOG [Concomitant]
     Route: 065
  3. HUMULIN [Concomitant]
     Route: 065

REACTIONS (2)
  - ARTHRALGIA [None]
  - MUSCULOSKELETAL STIFFNESS [None]
